FAERS Safety Report 25282468 (Version 1)
Quarter: 2025Q2

REPORT INFORMATION
  Report Type: Spontaneous
  Country: US (occurrence: None)
  Receive Date: 20250508
  Receipt Date: 20250508
  Transmission Date: 20250716
  Serious: Yes (Other)
  Sender: FDA-CTU
  Company Number: None

PATIENT
  Age: 71 Year
  Sex: Female
  Weight: 51.75 kg

DRUGS (13)
  1. DULOXETINE HYDROCHLORIDE [Suspect]
     Active Substance: DULOXETINE HYDROCHLORIDE
     Indication: Post herpetic neuralgia
     Dosage: 60 MG DAILY ORAL
     Route: 048
     Dates: start: 20250120, end: 20250321
  2. PRAVASTATIN [Concomitant]
     Active Substance: PRAVASTATIN
  3. SEMAGLUTIDE [Concomitant]
     Active Substance: SEMAGLUTIDE
  4. MINOXIDIL [Concomitant]
     Active Substance: MINOXIDIL
  5. FINASTERIDE [Concomitant]
     Active Substance: FINASTERIDE
  6. GABAPENTIN [Concomitant]
     Active Substance: GABAPENTIN
  7. PREDNISONE [Concomitant]
     Active Substance: PREDNISONE
  8. Vitamins D [Concomitant]
  9. Vitamins B5 [Concomitant]
  10. CYANOCOBALAMIN\DEXPANTHENOL\NIACINAMIDE\PYRIDOXINE HYDROCHLORIDE\RIBOF [Concomitant]
     Active Substance: CYANOCOBALAMIN\DEXPANTHENOL\NIACINAMIDE\PYRIDOXINE HYDROCHLORIDE\RIBOFLAVIN 5^-PHOSPHATE SODIUM\THIA
  11. CALCIUM\CHOLECALCIFEROL [Concomitant]
     Active Substance: CALCIUM\CHOLECALCIFEROL
  12. HERBALS\TURMERIC [Concomitant]
     Active Substance: HERBALS\TURMERIC
  13. ProOmega [Concomitant]

REACTIONS (3)
  - Hepatic enzyme increased [None]
  - Blood glucose increased [None]
  - Colitis microscopic [None]

NARRATIVE: CASE EVENT DATE: 20250303
